FAERS Safety Report 16871596 (Version 1)
Quarter: 2019Q4

REPORT INFORMATION
  Report Type: Spontaneous
  Country: US (occurrence: US)
  Receive Date: 20190930
  Receipt Date: 20190930
  Transmission Date: 20200122
  Serious: Yes (Hospitalization, Disabling)
  Sender: FDA-Public Use
  Company Number: None

PATIENT
  Sex: Male
  Weight: 81 kg

DRUGS (2)
  1. MINOXDIL [Suspect]
     Active Substance: MINOXIDIL
     Indication: HYPERTENSION
     Dates: start: 20190601
  2. ANTI HYPERTENSIVES [Concomitant]

REACTIONS (2)
  - Cardiac failure congestive [None]
  - Fluid overload [None]

NARRATIVE: CASE EVENT DATE: 20190705
